FAERS Safety Report 6385830-1 (Version None)
Quarter: 2009Q4

REPORT INFORMATION
  Report Type: 
  Country: None (occurrence: None)
  Receive Date: 20091002
  Receipt Date: 20090925
  Transmission Date: 20100525
  Serious: Yes (Other)
  Sender: FDA-Public Use
  Company Number: US-AMGEN-QUU366373

PATIENT
  Sex: Female

DRUGS (1)
  1. EPOGEN [Suspect]
     Indication: DIALYSIS

REACTIONS (4)
  - DENTAL OPERATION [None]
  - MALIGNANT MELANOMA [None]
  - OESOPHAGEAL CARCINOMA [None]
  - VASCULAR ACCESS COMPLICATION [None]
